FAERS Safety Report 6006397-3 (Version None)
Quarter: 2008Q4

REPORT INFORMATION
  Report Type: 
  Country: None (occurrence: None)
  Receive Date: 20081215
  Receipt Date: 20081201
  Transmission Date: 20090506
  Serious: Yes (Hospitalization)
  Sender: FDA-Public Use
  Company Number: 2008AL012088

PATIENT
  Age: 60 Year
  Sex: Female

DRUGS (3)
  1. PHENYTOIN [Suspect]
     Indication: PROPHYLAXIS
     Dosage: 300 MG; QD; PO
     Route: 048
  2. RANITIDINE [Suspect]
     Indication: PROPHYLAXIS
     Dosage: 300 MG; QD; PO
     Route: 048
  3. DEXAMETHASONE [Concomitant]

REACTIONS (9)
  - ACARODERMATITIS [None]
  - CATHETER RELATED INFECTION [None]
  - ERYTHEMA MULTIFORME [None]
  - FUNGAL INFECTION [None]
  - MUCOSAL INFLAMMATION [None]
  - NO THERAPEUTIC RESPONSE [None]
  - PRODUCTIVE COUGH [None]
  - SKIN REACTION [None]
  - TOXIC EPIDERMAL NECROLYSIS [None]
